FAERS Safety Report 7580402-5 (Version None)
Quarter: 2011Q2

REPORT INFORMATION
  Report Type: 
  Country: None (occurrence: None)
  Receive Date: 20110629
  Receipt Date: 20110624
  Transmission Date: 20111010
  Serious: Yes (Death)
  Sender: FDA-Public Use
  Company Number: FR-ROCHE-785863

PATIENT
  Age: 30 Year
  Sex: Male
  Weight: 120 kg

DRUGS (1)
  1. VALIUM [Suspect]
     Route: 065

REACTIONS (1)
  - DEATH [None]
